FAERS Safety Report 9275673 (Version 1)
Quarter: 2013Q2

REPORT INFORMATION
  Report Type: Spontaneous
  Country: US (occurrence: US)
  Receive Date: 20130507
  Receipt Date: 20130507
  Transmission Date: 20140414
  Serious: No
  Sender: FDA-Public Use
  Company Number: US-UCBSA-081725

PATIENT
  Sex: Male

DRUGS (1)
  1. VIMPAT [Suspect]
     Indication: CONVULSION
     Dosage: DRUG STRENGTH: 50 MG

REACTIONS (1)
  - Loss of consciousness [Not Recovered/Not Resolved]
